FAERS Safety Report 5842673-2 (Version None)
Quarter: 2008Q3

REPORT INFORMATION
  Report Type: 
  Country: None (occurrence: None)
  Receive Date: 20080808
  Receipt Date: 20080728
  Transmission Date: 20090109
  Serious: Yes (Hospitalization)
  Sender: FDA-Public Use
  Company Number: 2008AL008936

PATIENT
  Age: 62 Year
  Sex: Male

DRUGS (1)
  1. DIGOXIN [Suspect]
     Dosage: 0.125MG, PO
     Route: 048

REACTIONS (6)
  - DIARRHOEA [None]
  - HEAD DISCOMFORT [None]
  - HEART RATE IRREGULAR [None]
  - MALAISE [None]
  - PALPITATIONS [None]
  - POST PROCEDURAL INFECTION [None]
